FAERS Safety Report 4905935-9 (Version None)
Quarter: 2006Q1

REPORT INFORMATION
  Report Type: 
  Country: None (occurrence: None)
  Receive Date: 20060206
  Receipt Date: 20060126
  Transmission Date: 20060701
  Serious: Yes (Other)
  Sender: FDA-Public Use
  Company Number: 221375

PATIENT
  Age: 42 Year
  Sex: Female

DRUGS (3)
  1. RAPTIVA [Suspect]
     Indication: PSORIASIS
     Dosage: 0.9 ML, 1/WEEK, SUBCUTANEOUS
     Route: 058
     Dates: start: 20041222, end: 20051201
  2. NORVASC [Concomitant]
  3. LEVOXYL [Concomitant]

REACTIONS (2)
  - B-CELL LYMPHOMA [None]
  - METASTASIS [None]
